FAERS Safety Report 5472052-1 (Version None)
Quarter: 2007Q3

REPORT INFORMATION
  Report Type: 
  Country: None (occurrence: None)
  Receive Date: 20070928
  Receipt Date: 20070919
  Transmission Date: 20080115
  Serious: Yes (Other)
  Sender: FDA-Public Use
  Company Number: JP-PFIZER INC-2007078605

PATIENT
  Age: 60 Year
  Sex: Male

DRUGS (3)
  1. CABERGOLINE [Suspect]
     Indication: PARKINSON'S DISEASE
     Dosage: DAILY DOSE:3MG
     Route: 048
  2. L-DOPA [Concomitant]
     Route: 048
  3. PRAMIPEXOLE DIHYDROCHLORIDE [Concomitant]
     Route: 048

REACTIONS (1)
  - HEART VALVE INCOMPETENCE [None]
